FAERS Safety Report 12978373 (Version 1)
Quarter: 2016Q4

REPORT INFORMATION
  Report Type: Spontaneous
  Country: US (occurrence: US)
  Receive Date: 20161128
  Receipt Date: 20161128
  Transmission Date: 20170207
  Serious: No
  Sender: FDA-Public Use
  Company Number: US-PFIZER INC-2016542633

PATIENT
  Age: 87 Year
  Sex: Female

DRUGS (1)
  1. OXYTETRACYCLINE HCL [Suspect]
     Active Substance: OXYTETRACYCLINE HYDROCHLORIDE
     Dosage: UNK

REACTIONS (2)
  - Drug intolerance [Unknown]
  - Drug hypersensitivity [Unknown]
